FAERS Safety Report 7805472-8 (Version None)
Quarter: 2011Q4

REPORT INFORMATION
  Report Type: 
  Country: None (occurrence: None)
  Receive Date: 20111010
  Receipt Date: 20110926
  Transmission Date: 20120403
  Serious: Yes (Other)
  Sender: FDA-Public Use
  Company Number: PHEH2011US02219

PATIENT
  Sex: Female
  Weight: 96.616 kg

DRUGS (2)
  1. GLEEVEC [Suspect]
     Indication: CHRONIC MYELOID LEUKAEMIA
     Dosage: 1 DF, DAILY WITH FOOD
     Route: 048
     Dates: start: 20070101
  2. GLEEVEC [Suspect]
     Dosage: 400 MG, DAILY
     Route: 048
     Dates: start: 20100108

REACTIONS (10)
  - LYMPHADENOPATHY [None]
  - GASTROOESOPHAGEAL REFLUX DISEASE [None]
  - ANAEMIA [None]
  - PHYSICAL DISABILITY [None]
  - BACK PAIN [None]
  - BLOOD TEST ABNORMAL [None]
  - ESSENTIAL THROMBOCYTHAEMIA [None]
  - B-CELL SMALL LYMPHOCYTIC LYMPHOMA [None]
  - CHRONIC MYELOID LEUKAEMIA (IN REMISSION) [None]
  - HYPERTENSION [None]
